FAERS Safety Report 9936947 (Version 1)
Quarter: 2014Q1

REPORT INFORMATION
  Report Type: Spontaneous
  Country: US (occurrence: None)
  Receive Date: 20140115
  Receipt Date: 20140115
  Transmission Date: 20141002
  Serious: No
  Sender: FDA-Public Use
  Company Number: 2013US002592

PATIENT
  Age: 76 Year
  Sex: Male
  Weight: 83 kg

DRUGS (7)
  1. MAGNESIUM (MAGNESIUM) [Concomitant]
  2. ICLUSIG (PONATINIB) TABLET, 15MG [Suspect]
     Indication: CHRONIC MYELOID LEUKAEMIA
     Route: 048
     Dates: end: 20130927
  3. CISPLATIN (CISPLATIN) [Concomitant]
  4. COREG (CARVEDILOL) [Concomitant]
  5. PRADAXA (DABIGATRAN ETEXILATE MESILATE) [Concomitant]
  6. NIFEDICAL ER (NIFEDIPINE) [Concomitant]
  7. LOVAZA (OMEGA-3-ACID ETHYL ESTER) CAPSULE [Concomitant]

REACTIONS (1)
  - Hypertension [None]
